FAERS Safety Report 5097254-8 (Version None)
Quarter: 2006Q3

REPORT INFORMATION
  Report Type: 
  Country: None (occurrence: None)
  Receive Date: 20060901
  Receipt Date: 20060817
  Transmission Date: 20061208
  Serious: Yes (Other)
  Sender: FDA-Public Use
  Company Number: CHPA2006US08270

PATIENT
  Sex: Female
  Weight: 57.6 kg

DRUGS (1)
  1. EXCEDRIN EXTRA STRENGTH (NCH)(CAFFEINE CITRATE, ACETYLSALICYLIC ACID, [Suspect]
     Indication: HEADACHE
     Dosage: SEE IMAGE
     Route: 048
     Dates: start: 20060816, end: 20060816

REACTIONS (3)
  - DRUG ABUSER [None]
  - DRUG INEFFECTIVE [None]
  - HEADACHE [None]
